FAERS Safety Report 15650283 (Version 1)
Quarter: 2018Q4

REPORT INFORMATION
  Report Type: Spontaneous
  Country: DK (occurrence: DK)
  Receive Date: 20181123
  Receipt Date: 20181123
  Transmission Date: 20190205
  Serious: Yes (Congenital Anomaly)
  Sender: FDA-Public Use
  Company Number: DK-BAXTER-2018BAX028315

PATIENT
  Age: 1 Week
  Sex: Male

DRUGS (2)
  1. EPIRUBICIN TEVA [Suspect]
     Active Substance: EPIRUBICIN
     Indication: BREAST CANCER
     Dosage: POTENCY: 2 MG/ML.
     Route: 064
     Dates: start: 20180213, end: 20180418
  2. SENDOXAN [Suspect]
     Active Substance: CYCLOPHOSPHAMIDE
     Indication: BREAST CANCER
     Route: 064
     Dates: start: 20180213, end: 20180418

REACTIONS (2)
  - Foetal exposure during pregnancy [Recovered/Resolved]
  - Pectus excavatum [Not Recovered/Not Resolved]

NARRATIVE: CASE EVENT DATE: 20180213
